FAERS Safety Report 6632690-7 (Version None)
Quarter: 2010Q1

REPORT INFORMATION
  Report Type: 
  Country: None (occurrence: None)
  Receive Date: 20100312
  Receipt Date: 20091216
  Transmission Date: 20100710
  Serious: No
  Sender: FDA-Public Use
  Company Number: US-BAYER-200943516NA

PATIENT
  Age: 27 Year
  Sex: Male
  Weight: 91 kg

DRUGS (3)
  1. ULTRAVIST 150 [Suspect]
     Indication: COMPUTERISED TOMOGRAM ABDOMEN
     Dosage: TOTAL DAILY DOSE: 135 ML  UNIT DOSE: 200 ML
     Route: 042
     Dates: start: 20091216, end: 20091216
  2. RHINOPRONT [Concomitant]
  3. VALORON [Concomitant]

REACTIONS (2)
  - CHILLS [None]
  - URTICARIA [None]
